FAERS Safety Report 25849869 (Version 1)
Quarter: 2025Q3

REPORT INFORMATION
  Report Type: Report from Study
  Country: IN (occurrence: IN)
  Receive Date: 20250926
  Receipt Date: 20250926
  Transmission Date: 20251021
  Serious: Yes (Other)
  Sender: NOVARTIS
  Company Number: IN-002147023-NVSC2025IN061802

PATIENT
  Sex: Female

DRUGS (3)
  1. RIBOCICLIB [Suspect]
     Active Substance: RIBOCICLIB
     Indication: Breast cancer
     Dosage: 400 MG (200MG X 2), QD FOR 21 DAYS THEN 7 DAYS OFF
     Route: 048
     Dates: start: 20250228
  2. RIBOCICLIB [Suspect]
     Active Substance: RIBOCICLIB
     Indication: Breast cancer metastatic
     Dosage: 200 MG, QD
     Route: 048
  3. RIBOCICLIB [Suspect]
     Active Substance: RIBOCICLIB
     Dosage: 400 MG, QD
     Route: 048

REACTIONS (10)
  - Hypothyroidism [Unknown]
  - Body mass index increased [Unknown]
  - Dyspnoea exertional [Unknown]
  - Eastern Cooperative Oncology Group performance status abnormal [Unknown]
  - Dysphonia [Unknown]
  - Osteoporosis [Unknown]
  - Hypertension [Unknown]
  - Osteoarthritis [Unknown]
  - Body temperature decreased [Unknown]
  - Heart rate increased [Unknown]

NARRATIVE: CASE EVENT DATE: 20250911
